FAERS Safety Report 18359975 (Version 1)
Quarter: 2020Q4

REPORT INFORMATION
  Report Type: Spontaneous
  Country: US (occurrence: US)
  Receive Date: 20201008
  Receipt Date: 20201008
  Transmission Date: 20210114
  Serious: No
  Sender: FDA-Public Use
  Company Number: US-HORIZON-PRO-0227-2020

PATIENT
  Age: 29 Year
  Sex: Male

DRUGS (1)
  1. PROCYSBI [Suspect]
     Active Substance: CYSTEAMINE BITARTRATE
     Indication: AMINO ACID METABOLISM DISORDER
     Dosage: 4 CAPSULES ORALLY EVERY 12 HOURS ON EMPTY STOMACH

REACTIONS (1)
  - Abdominal discomfort [Unknown]
